FAERS Safety Report 8967697 (Version 1)
Quarter: 2012Q4

REPORT INFORMATION
  Report Type: Spontaneous
  Country: KR (occurrence: None)
  Receive Date: 20121207
  Receipt Date: 20121207
  Transmission Date: 20130627
  Serious: Yes (Other)
  Sender: FDA-Public Use
  Company Number: 2012-08661

PATIENT
  Age: 42 Year
  Sex: Female

DRUGS (7)
  1. OXALIPLATIN (OXALIPLATIN) [Suspect]
     Indication: METASTATIC GASTRIC CANCER
     Route: 042
  2. 5-FU [Suspect]
     Indication: METASTATIC GASTRIC CANCER
     Route: 040
  3. 5-FU [Suspect]
     Indication: METASTATIC GASTRIC CANCER
     Route: 042
  4. CALCIUM FOLINATE [Concomitant]
  5. OMEPRAZOLE (OMEPRAZOLE) [Concomitant]
  6. DOMPERIDONE (DOMPERIDONE) [Concomitant]
  7. FERROUS SULPHATE (FERROUS SULFATE) [Concomitant]

REACTIONS (8)
  - Encephalopathy [None]
  - Nausea [None]
  - Neutropenia [None]
  - Mucosal inflammation [None]
  - Grand mal convulsion [None]
  - Coma [None]
  - Confusional state [None]
  - Disorientation [None]
